FAERS Safety Report 25321216 (Version 5)
Quarter: 2025Q3

REPORT INFORMATION
  Report Type: Report from Study
  Country: US (occurrence: US)
  Receive Date: 20250515
  Receipt Date: 20250825
  Transmission Date: 20251021
  Serious: No
  Sender: SUNOVION
  Company Number: US-SUMITOMO PHARMA SWITZERLAND GMBH-2025SPA005077

PATIENT
  Age: 69 Year
  Sex: Male

DRUGS (5)
  1. ORGOVYX [Suspect]
     Active Substance: RELUGOLIX
     Indication: Prostate cancer
     Dosage: 360 MG, SINGLE
     Route: 048
     Dates: start: 20250322, end: 20250322
  2. ORGOVYX [Suspect]
     Active Substance: RELUGOLIX
     Dosage: 120 MG, QD
     Route: 048
     Dates: start: 20250323
  3. TYLENOL [Suspect]
     Active Substance: ACETAMINOPHEN
     Indication: Product used for unknown indication
  4. CHOLESTEROL [Suspect]
     Active Substance: CHOLESTEROL
     Indication: Product used for unknown indication
  5. ATORVASTATIN [Suspect]
     Active Substance: ATORVASTATIN
     Indication: Product used for unknown indication

REACTIONS (5)
  - Hepatic enzyme increased [Unknown]
  - Anger [Unknown]
  - Depressed mood [Unknown]
  - Depression [Unknown]
  - Hot flush [Unknown]
